FAERS Safety Report 9802731 (Version 3)
Quarter: 2014Q2

REPORT INFORMATION
  Report Type: Spontaneous
  Country: US (occurrence: US)
  Receive Date: 20140108
  Receipt Date: 20140506
  Transmission Date: 20141212
  Serious: Yes (Other)
  Sender: FDA-Public Use
  Company Number: US-AMGEN-USASP2013077191

PATIENT
  Age: 63 Year
  Sex: Female

DRUGS (4)
  1. ENBREL [Suspect]
     Indication: RHEUMATOID ARTHRITIS
     Dosage: 50 MG, QWK
     Route: 065
     Dates: start: 20131014, end: 20140217
  2. ENBREL [Suspect]
     Dosage: UNK
     Route: 065
  3. ENBREL [Suspect]
     Dosage: UNK
     Route: 065
  4. METHOTREXATE [Concomitant]
     Dosage: UNK

REACTIONS (21)
  - Polymyalgia rheumatica [Not Recovered/Not Resolved]
  - Temporal arteritis [Not Recovered/Not Resolved]
  - Tremor [Unknown]
  - Optic neuritis [Not Recovered/Not Resolved]
  - Injection site erythema [Recovered/Resolved]
  - Injection site swelling [Not Recovered/Not Resolved]
  - Injection site reaction [Not Recovered/Not Resolved]
  - Pain in extremity [Not Recovered/Not Resolved]
  - Migraine with aura [Not Recovered/Not Resolved]
  - Hypoaesthesia [Not Recovered/Not Resolved]
  - Peripheral coldness [Not Recovered/Not Resolved]
  - Muscular weakness [Not Recovered/Not Resolved]
  - Peripheral swelling [Not Recovered/Not Resolved]
  - Joint swelling [Not Recovered/Not Resolved]
  - Neuralgia [Not Recovered/Not Resolved]
  - Musculoskeletal stiffness [Unknown]
  - Musculoskeletal pain [Not Recovered/Not Resolved]
  - Injection site pruritus [Recovered/Resolved]
  - Injection site pain [Not Recovered/Not Resolved]
  - Injection site urticaria [Unknown]
  - Paraesthesia [Not Recovered/Not Resolved]
